FAERS Safety Report 4471581-7 (Version None)
Quarter: 2004Q4

REPORT INFORMATION
  Report Type: 
  Country: None (occurrence: None)
  Receive Date: 20041012
  Receipt Date: 20040707
  Transmission Date: 20050328
  Serious: Yes (Hospitalization)
  Sender: FDA-Public Use
  Company Number: JP-GLAXOSMITHKLINE-B0338386A

PATIENT
  Age: 45 Year
  Sex: Male

DRUGS (7)
  1. LAMIVUDINE [Suspect]
     Indication: HIV INFECTION
     Dosage: 150MG TWICE PER DAY
     Route: 048
     Dates: start: 20040127
  2. STAVUDINE [Suspect]
     Indication: HIV INFECTION
     Dosage: 60MG PER DAY
     Route: 048
     Dates: start: 20040127
  3. SAQUINAVIR [Suspect]
     Indication: HIV INFECTION
     Dosage: 1600MG PER DAY
     Route: 048
     Dates: start: 20040209
  4. RITONAVIR [Suspect]
     Indication: HIV INFECTION
     Route: 048
     Dates: start: 20040209
  5. EFAVIRENZ [Suspect]
     Indication: HIV INFECTION
     Route: 048
     Dates: start: 20040127, end: 20040208
  6. GANCICLOVIR [Concomitant]
     Indication: CYTOMEGALOVIRUS INFECTION
     Dosage: 750MG THREE TIMES PER DAY
     Route: 048
     Dates: start: 20040325
  7. FLUCONAZOLE [Concomitant]
     Indication: CANDIDIASIS
     Dosage: 100MG PER DAY
     Route: 048
     Dates: start: 20040108

REACTIONS (4)
  - ATYPICAL MYCOBACTERIAL INFECTION [None]
  - IMMUNE RECONSTITUTION SYNDROME [None]
  - MALAISE [None]
  - PYREXIA [None]
